FAERS Safety Report 15854132 (Version 1)
Quarter: 2019Q1

REPORT INFORMATION
  Report Type: Spontaneous
  Country: US (occurrence: US)
  Receive Date: 20190121
  Receipt Date: 20190121
  Transmission Date: 20190417
  Serious: Yes (Hospitalization)
  Sender: FDA-Public Use
  Company Number: None

PATIENT
  Age: 38 Year
  Sex: Female

DRUGS (22)
  1. BYDUREON [Concomitant]
     Active Substance: EXENATIDE
  2. AZITHROMYCIN ANHYDROUS. [Concomitant]
     Active Substance: AZITHROMYCIN ANHYDROUS
  3. LEVEMIR [Concomitant]
     Active Substance: INSULIN DETEMIR
  4. CIPROFLOXACIN. [Concomitant]
     Active Substance: CIPROFLOXACIN
  5. ATORVASTATIN [Concomitant]
     Active Substance: ATORVASTATIN
  6. GLUCAGON. [Concomitant]
     Active Substance: GLUCAGON
  7. HUMIRA [Suspect]
     Active Substance: ADALIMUMAB
     Indication: PSORIATIC ARTHROPATHY
     Dosage: ?          OTHER FREQUENCY:Q2W;?
     Route: 058
     Dates: start: 20180724
  8. ONDANSETRON [Concomitant]
     Active Substance: ONDANSETRON
  9. NOVOLOG [Concomitant]
     Active Substance: INSULIN ASPART
  10. GLIMEPIRIDE. [Concomitant]
     Active Substance: GLIMEPIRIDE
  11. JARDIANCE [Concomitant]
     Active Substance: EMPAGLIFLOZIN
  12. LISINOPRIL. [Concomitant]
     Active Substance: LISINOPRIL
  13. FLUCONAZOLE. [Concomitant]
     Active Substance: FLUCONAZOLE
  14. METHADONE [Concomitant]
     Active Substance: METHADONE HYDROCHLORIDE
  15. AMITRIPTYLIN [Concomitant]
     Active Substance: AMITRIPTYLINE
  16. NITROFURANTIN/PREDNISONE [Concomitant]
  17. TRIAMCINOLON [Concomitant]
  18. GABAPENTIN. [Concomitant]
     Active Substance: GABAPENTIN
  19. METHOTREXATE. [Concomitant]
     Active Substance: METHOTREXATE
  20. METOPROLOL TARTRATE. [Concomitant]
     Active Substance: METOPROLOL TARTRATE
  21. HYDROCHLOROT [Concomitant]
     Active Substance: HYDROCHLOROTHIAZIDE
  22. LIDOCAINE. [Concomitant]
     Active Substance: LIDOCAINE

REACTIONS (4)
  - Nephrolithiasis [None]
  - Vomiting [None]
  - Hepatic lesion [None]
  - Malaise [None]

NARRATIVE: CASE EVENT DATE: 20190115
